FAERS Safety Report 24271528 (Version 3)
Quarter: 2024Q3

REPORT INFORMATION
  Report Type: Report from Study
  Country: GB (occurrence: GB)
  Receive Date: 20240901
  Receipt Date: 20240921
  Transmission Date: 20241016
  Serious: Yes (Hospitalization)
  Sender: ABBVIE
  Company Number: GB-ABBVIE-5901233

PATIENT
  Age: 61 Year
  Sex: Male

DRUGS (5)
  1. CARBIDOPA\LEVODOPA [Suspect]
     Active Substance: CARBIDOPA\LEVODOPA
     Indication: Parkinson^s disease
     Dosage: 1ST REGIMEN, FIRST ADMIN DATE- UNKNOWN, CR:3.5 MLS DAILY, 20MGS/5MGS
     Route: 050
     Dates: end: 20240909
  2. CARBIDOPA\LEVODOPA [Suspect]
     Active Substance: CARBIDOPA\LEVODOPA
     Dosage: 2ND REGIMEN, DOSE INCREASED, SET THE MD: 1.8MLS, CR:5.0MLS DAILY, ED: 1.4MLS AND PUMP PUT INTO LL...
     Route: 050
     Dates: start: 20240909
  3. CARBIDOPA\LEVODOPA [Suspect]
     Active Substance: CARBIDOPA\LEVODOPA
     Dosage: MD:1.8, CR:5.0 AND ED:1.4 ; NIGHT CR 3.5 MLS
     Route: 050
     Dates: start: 202409
  4. CARBIDOPA\LEVODOPA [Suspect]
     Active Substance: CARBIDOPA\LEVODOPA
     Dosage: MD:1.8, CR: 4.5 AND ED:1.4
     Route: 050
     Dates: start: 202409, end: 202409
  5. MIRTAZAPINE [Concomitant]
     Active Substance: MIRTAZAPINE
     Indication: Product used for unknown indication

REACTIONS (19)
  - Infection [Unknown]
  - Anxiety [Not Recovered/Not Resolved]
  - Bedridden [Unknown]
  - Arthralgia [Not Recovered/Not Resolved]
  - Dystonia [Not Recovered/Not Resolved]
  - Fall [Not Recovered/Not Resolved]
  - Muscle rigidity [Not Recovered/Not Resolved]
  - Device issue [Not Recovered/Not Resolved]
  - Back pain [Not Recovered/Not Resolved]
  - Bowel movement irregularity [Recovered/Resolved]
  - Depressed mood [Not Recovered/Not Resolved]
  - Urinary tract infection [Not Recovered/Not Resolved]
  - Dysphagia [Not Recovered/Not Resolved]
  - Freezing phenomenon [Not Recovered/Not Resolved]
  - Catheter site pain [Unknown]
  - Weight decreased [Not Recovered/Not Resolved]
  - Depression [Not Recovered/Not Resolved]
  - Dyskinesia [Recovered/Resolved]
  - Abnormal dreams [Not Recovered/Not Resolved]

NARRATIVE: CASE EVENT DATE: 20240101
